FAERS Safety Report 25954923 (Version 2)
Quarter: 2025Q4

REPORT INFORMATION
  Report Type: Spontaneous
  Country: EU (occurrence: EU)
  Receive Date: 20251024
  Receipt Date: 20251124
  Transmission Date: 20260118
  Serious: Yes (Hospitalization, Other)
  Sender: ALEXION PHARMACEUTICALS
  Company Number: None

PATIENT
  Age: 83 Year
  Sex: Female
  Weight: 70.2 kg

DRUGS (1)
  1. ESOMEPRAZOLE [Suspect]
     Active Substance: ESOMEPRAZOLE
     Indication: Abdominal discomfort
     Dosage: 1 PIECE TWICE A DAY
     Dates: start: 20231031, end: 20250928

REACTIONS (3)
  - Pneumonia aspiration [Recovered/Resolved]
  - Hypomagnesaemia [Recovered/Resolved]
  - Epilepsy [Recovered/Resolved]
